FAERS Safety Report 23477700 (Version 1)
Quarter: 2024Q1

REPORT INFORMATION
  Report Type: Spontaneous
  Country: US (occurrence: US)
  Receive Date: 20240204
  Receipt Date: 20240204
  Transmission Date: 20240410
  Serious: No
  Sender: FDA-Public Use
  Company Number: US-EXELIXIS-CABO-23066271

PATIENT
  Age: 74 Year
  Sex: Male
  Weight: 76.66 kg

DRUGS (10)
  1. CABOMETYX [Suspect]
     Active Substance: CABOZANTINIB S-MALATE
     Indication: Renal cancer
     Dosage: UNK
  2. LENVIMA [Suspect]
     Active Substance: LENVATINIB
     Indication: Renal cancer
     Dosage: 14 MG
     Route: 048
     Dates: start: 20230621
  3. EVEROLIMUS [Suspect]
     Active Substance: EVEROLIMUS
     Indication: Renal cancer
     Dosage: 5 MG
  4. TRULICITY [Concomitant]
     Active Substance: DULAGLUTIDE
  5. ROPINIROLE [Concomitant]
     Active Substance: ROPINIROLE
  6. METFORMIN [Concomitant]
     Active Substance: METFORMIN HYDROCHLORIDE
  7. LEVOTHYROXINE [Concomitant]
     Active Substance: LEVOTHYROXINE\LEVOTHYROXINE SODIUM
  8. LATANOPROST [Concomitant]
     Active Substance: LATANOPROST
  9. JARDIANCE [Concomitant]
     Active Substance: EMPAGLIFLOZIN
  10. ATORVASTATIN [Concomitant]
     Active Substance: ATORVASTATIN

REACTIONS (3)
  - Coating in mouth [Not Recovered/Not Resolved]
  - Oral discomfort [Not Recovered/Not Resolved]
  - Dry mouth [Unknown]
